FAERS Safety Report 7369058-4 (Version None)
Quarter: 2011Q1

REPORT INFORMATION
  Report Type: 
  Country: None (occurrence: None)
  Receive Date: 20110309
  Receipt Date: 20110302
  Transmission Date: 20110831
  Serious: Yes (Other)
  Sender: FDA-Public Use
  Company Number: DSA_45116_2011

PATIENT
  Sex: Female
  Weight: 43.0917 kg

DRUGS (13)
  1. PRILOSEC [Concomitant]
  2. VITAMIN D [Concomitant]
  3. CARAFATE [Concomitant]
  4. CITALOPRAM HYDROBROMIDE [Concomitant]
  5. OMEPRAZOLE [Concomitant]
  6. NAMENDA [Concomitant]
  7. XENAZINE [Suspect]
     Indication: PRODUCT USED FOR UNKNOWN INDICATION
     Dosage: (12.5 MG TID ORAL)
     Route: 048
  8. POTASSIUM [Concomitant]
  9. ARICEPT [Concomitant]
  10. DITROPAN XL [Concomitant]
  11. IRON [Concomitant]
  12. TYLENOL (CAPLET) [Concomitant]
  13. VITAMIN B COMPLEX /00059201/ [Concomitant]

REACTIONS (4)
  - HEAD INJURY [None]
  - LOSS OF CONSCIOUSNESS [None]
  - FALL [None]
  - LACERATION [None]
